FAERS Safety Report 15558122 (Version 7)
Quarter: 2019Q4

REPORT INFORMATION
  Report Type: Spontaneous
  Country: US (occurrence: US)
  Receive Date: 20181027
  Receipt Date: 20191216
  Transmission Date: 20200122
  Serious: Yes (Death, Other)
  Sender: FDA-Public Use
  Company Number: PHEH2018US045095

PATIENT
  Age: 64 Year
  Sex: Female

DRUGS (3)
  1. AFINITOR [Suspect]
     Active Substance: EVEROLIMUS
     Dosage: 10 MG, QD
     Route: 048
  2. LENVATINIB [Suspect]
     Active Substance: LENVATINIB
     Indication: UTERINE CANCER
     Dosage: 20 MG, QD
     Route: 048
  3. AFINITOR [Suspect]
     Active Substance: EVEROLIMUS
     Indication: UTERINE CANCER
     Dosage: 10 MG, QD
     Route: 048

REACTIONS (13)
  - Haemoglobin decreased [Unknown]
  - Alopecia [Unknown]
  - Arthralgia [Unknown]
  - Drug intolerance [Unknown]
  - Death [Fatal]
  - Stomatitis [Unknown]
  - Drug ineffective [Not Recovered/Not Resolved]
  - Malignant neoplasm progression [Unknown]
  - Product use in unapproved indication [Unknown]
  - Uterine cancer [Unknown]
  - Rash [Unknown]
  - Pain of skin [Unknown]
  - Cough [Unknown]

NARRATIVE: CASE EVENT DATE: 20191210
